FAERS Safety Report 9538537 (Version 1)
Quarter: 2013Q3

REPORT INFORMATION
  Report Type: Report from Study
  Country: CA (occurrence: CA)
  Receive Date: 20130920
  Receipt Date: 20130920
  Transmission Date: 20140515
  Serious: Yes (Other)
  Sender: FDA-Public Use
  Company Number: CA-JNJFOC-20130908781

PATIENT
  Sex: Female

DRUGS (7)
  1. REMICADE [Suspect]
     Indication: CROHN^S DISEASE
     Route: 042
     Dates: start: 20120822
  2. CIPRO [Concomitant]
     Route: 065
  3. FLAGYL [Concomitant]
     Route: 065
  4. TACROLIMUS [Concomitant]
     Route: 065
  5. VITAMIN D [Concomitant]
     Route: 065
  6. MYFORTIC [Concomitant]
     Route: 065
  7. POTASSIUM CHLORIDE [Concomitant]
     Route: 065

REACTIONS (2)
  - Hernia [Recovering/Resolving]
  - Scar [Recovering/Resolving]
